FAERS Safety Report 7165426 (Version 16)
Quarter: 2014Q2

REPORT INFORMATION
  Report Type: Report from Study
  Country: CA (occurrence: CA)
  Receive Date: 20091103
  Receipt Date: 20140501
  Transmission Date: 20141212
  Serious: Yes (Other)
  Sender: FDA-Public Use
  Company Number: PHHY2009CA25966

PATIENT
  Sex: Female

DRUGS (16)
  1. SANDOSTATIN LAR [Suspect]
     Indication: ACROMEGALY
     Dosage: 20 MG, QMO
     Route: 030
     Dates: start: 20090619
  2. SANDOSTATIN LAR [Suspect]
     Dosage: 20 MG, EVERY 4 WEEKS
     Route: 030
     Dates: end: 200907
  3. SANDOSTATIN LAR [Suspect]
     Dosage: 20 MG, QMO
     Route: 030
     Dates: start: 20100422
  4. SANDOSTATIN LAR [Suspect]
     Dosage: 20 MG, EVERY 4 WEEKS
     Route: 030
  5. SANDOSTATIN LAR [Suspect]
     Dosage: 20 MG, QMO
     Route: 030
  6. SANDOSTATIN LAR [Suspect]
     Dosage: 30 MG, EVERY 4 WEEKS
     Route: 030
  7. SANDOSTATIN LAR [Suspect]
     Dosage: 30 MG, QMO
     Route: 030
  8. SANDOSTATIN LAR [Suspect]
     Dosage: 30 MG, EVERY 4 WEEKS
     Route: 030
  9. ADALAT XL [Concomitant]
     Dosage: UNK UKN, UNK
  10. APA [Concomitant]
     Dosage: UNK UKN, UNK
  11. WELLBUTRIN [Concomitant]
     Dosage: UNK UKN, UNK
  12. TRAZODONE [Concomitant]
     Dosage: UNK UKN, UNK
  13. SYNTHROID [Concomitant]
     Dosage: UNK UKN, UNK
  14. ABILIFY [Concomitant]
     Dosage: UNK UKN, UNK
  15. ATORVASTATIN [Concomitant]
     Dosage: UNK UKN, UNK
  16. OXAZEPAM [Concomitant]
     Dosage: UNK UKN, UNK

REACTIONS (23)
  - Cardiovascular disorder [Unknown]
  - Mastitis [Unknown]
  - Weight decreased [Unknown]
  - Fatigue [Unknown]
  - Cholelithiasis [Unknown]
  - Nausea [Unknown]
  - Confusional state [Unknown]
  - Panic attack [Unknown]
  - Mouth ulceration [Not Recovered/Not Resolved]
  - Sinusitis [Unknown]
  - Anaemia [Unknown]
  - Hunger [Unknown]
  - Alopecia [Unknown]
  - Headache [Unknown]
  - Malaise [Unknown]
  - Abdominal discomfort [Unknown]
  - Abdominal pain [Unknown]
  - Abdominal distension [Unknown]
  - Diarrhoea [Unknown]
  - Frequent bowel movements [Not Recovered/Not Resolved]
  - Faeces pale [Unknown]
  - Constipation [Unknown]
  - Flatulence [Unknown]
